FAERS Safety Report 19421980 (Version 1)
Quarter: 2021Q2

REPORT INFORMATION
  Report Type: Report from Study
  Country: BR (occurrence: BR)
  Receive Date: 20210616
  Receipt Date: 20210616
  Transmission Date: 20210717
  Serious: Yes (Hospitalization)
  Sender: FDA-Public Use
  Company Number: BR-BIOGEN-2019BI00716773

PATIENT
  Sex: Female

DRUGS (1)
  1. TECFIDERA [Suspect]
     Active Substance: DIMETHYL FUMARATE
     Indication: MULTIPLE SCLEROSIS
     Route: 048
     Dates: start: 201612

REACTIONS (10)
  - Memory impairment [Not Recovered/Not Resolved]
  - Motor dysfunction [Not Recovered/Not Resolved]
  - Multiple sclerosis relapse [Recovered/Resolved]
  - Facial pain [Unknown]
  - Hyperglycaemia [Unknown]
  - Confusional state [Not Recovered/Not Resolved]
  - Treatment failure [Unknown]
  - Trigeminal neuralgia [Unknown]
  - Stress [Unknown]
  - Sciatica [Unknown]

NARRATIVE: CASE EVENT DATE: 2018
